FAERS Safety Report 10175188 (Version 1)
Quarter: 2014Q2

REPORT INFORMATION
  Report Type: Spontaneous
  Country: US (occurrence: US)
  Receive Date: 20140515
  Receipt Date: 20140515
  Transmission Date: 20141212
  Serious: No
  Sender: FDA-Public Use
  Company Number: US-VIVUS-2014V1000082

PATIENT
  Age: 39 Year
  Sex: Female
  Weight: 77.18 kg

DRUGS (4)
  1. QSYMIA 3.75MG/23MG [Suspect]
     Indication: PRODUCT USED FOR UNKNOWN INDICATION
     Route: 048
     Dates: start: 201307
  2. QSYMIA 7.5MG/46MG [Suspect]
     Indication: PRODUCT USED FOR UNKNOWN INDICATION
     Route: 048
  3. QSYMIA 11.25MG/69MG [Suspect]
     Indication: PRODUCT USED FOR UNKNOWN INDICATION
     Route: 048
     Dates: start: 201311
  4. ZOLOFT [Concomitant]
     Indication: DEPRESSION
     Route: 048

REACTIONS (2)
  - Irritability [Recovered/Resolved]
  - Insomnia [Recovered/Resolved]
